FAERS Safety Report 25520465 (Version 4)
Quarter: 2025Q3

REPORT INFORMATION
  Report Type: Spontaneous
  Country: US (occurrence: US)
  Receive Date: 20250704
  Receipt Date: 20250801
  Transmission Date: 20251021
  Serious: Yes (Hospitalization, Other)
  Sender: MADRIGAL PHARMACEUTICALS
  Company Number: US-MADRIGAL PHARMACEUTICALS, INC-2025REZ6721

PATIENT

DRUGS (13)
  1. REZDIFFRA [Suspect]
     Active Substance: RESMETIROM
     Indication: Metabolic dysfunction-associated steatohepatitis
     Dosage: 100 MILLIGRAM, QD
     Route: 048
     Dates: start: 20250123, end: 202505
  2. REZDIFFRA [Suspect]
     Active Substance: RESMETIROM
     Dosage: 100 MILLIGRAM, QD
     Route: 048
     Dates: start: 202505
  3. ALLOPURINOL [Concomitant]
     Active Substance: ALLOPURINOL
  4. ASPIRIN [Concomitant]
     Active Substance: ASPIRIN
  5. ATORVASTATIN [Concomitant]
     Active Substance: ATORVASTATIN
  6. CANDESARTAN [Concomitant]
     Active Substance: CANDESARTAN
  7. DOXAZOSIN [Concomitant]
     Active Substance: DOXAZOSIN MESYLATE
  8. METFORMIN [Concomitant]
     Active Substance: METFORMIN HYDROCHLORIDE
  9. METOPROLOL [Concomitant]
     Active Substance: METOPROLOL
  10. MOUNJARO [Concomitant]
     Active Substance: TIRZEPATIDE
  11. SPIRONOLACTONE [Concomitant]
     Active Substance: SPIRONOLACTONE
  12. POTASSIUM [Concomitant]
     Active Substance: POTASSIUM
  13. VITAMINS [Concomitant]
     Active Substance: VITAMINS

REACTIONS (3)
  - Ventricular tachycardia [Recovered/Resolved]
  - Platelet count decreased [Recovering/Resolving]
  - Therapy interrupted [Recovered/Resolved]

NARRATIVE: CASE EVENT DATE: 20250523
